FAERS Safety Report 25606437 (Version 3)
Quarter: 2025Q4

REPORT INFORMATION
  Report Type: Spontaneous
  Country: CA (occurrence: CA)
  Receive Date: 20250725
  Receipt Date: 20251031
  Transmission Date: 20260118
  Serious: Yes (Other)
  Sender: CELLTRION
  Company Number: CA-PFIZER INC-202400195311

PATIENT

DRUGS (18)
  1. INFLECTRA [Suspect]
     Active Substance: INFLIXIMAB-DYYB
     Indication: Crohn^s disease
     Dosage: 15 MG/KG, EVERY 6 WEEKS
     Route: 042
     Dates: start: 20220515
  2. INFLECTRA [Suspect]
     Active Substance: INFLIXIMAB-DYYB
     Dosage: 15 MG/KG. EVERY 6 WEEKS
     Route: 042
     Dates: start: 20240503
  3. INFLECTRA [Suspect]
     Active Substance: INFLIXIMAB-DYYB
     Dosage: 15 MG/KG, (664.5 MG) AFTER 6 WEEKS
     Route: 042
     Dates: start: 20240614
  4. INFLECTRA [Suspect]
     Active Substance: INFLIXIMAB-DYYB
     Dosage: 15 MG/KG, (664.5 MG) AFTER 6 WEEKS
     Route: 042
     Dates: start: 20240614
  5. INFLECTRA [Suspect]
     Active Substance: INFLIXIMAB-DYYB
     Dosage: 664.5 MG, AFTER 6 WEEKS (15 MG/KG, EVERY 6 WEEKS)
     Route: 042
     Dates: start: 20240614
  6. INFLECTRA [Suspect]
     Active Substance: INFLIXIMAB-DYYB
     Dosage: 664.5 MG, AFTER 6 WEEKS (15 MG/KG, EVERY 6 WEEKS)
     Route: 042
     Dates: start: 20240614
  7. INFLECTRA [Suspect]
     Active Substance: INFLIXIMAB-DYYB
     Dosage: 664.5 MG, AFTER 6 WEEKS (15 MG/KG, EVERY 6 WEEKS)
     Route: 042
     Dates: start: 20240614
  8. INFLECTRA [Suspect]
     Active Substance: INFLIXIMAB-DYYB
     Dosage: 750 MG, AFTER 14 WEEKS (15 MG/KG, EVERY 6 WEEKS)
     Route: 042
     Dates: start: 20240920
  9. INFLECTRA [Suspect]
     Active Substance: INFLIXIMAB-DYYB
     Dosage: 772.5 MG AFTER 9 WEEKS (15 MG/KG, EVERY 6 WEEKS)
     Route: 042
     Dates: start: 20241122
  10. INFLECTRA [Suspect]
     Active Substance: INFLIXIMAB-DYYB
     Dosage: 772.5 MG AFTER 9 WEEKS (15 MG/KG, EVERY 6 WEEKS)
     Route: 042
     Dates: start: 20241122
  11. INFLECTRA [Suspect]
     Active Substance: INFLIXIMAB-DYYB
     Dosage: 760.5 MG, 9 WEEKS AFTER LAST TREATMENT  (15 MG/KG, EVERY 6 WEEKS)
     Route: 042
     Dates: start: 20250124
  12. INFLECTRA [Suspect]
     Active Substance: INFLIXIMAB-DYYB
     Dosage: 760.5 MG, 9 WEEKS AFTER LAST TREATMENT  (15 MG/KG, EVERY 6 WEEKS)
     Route: 042
     Dates: start: 20250124
  13. INFLECTRA [Suspect]
     Active Substance: INFLIXIMAB-DYYB
     Dosage: 789 MG, AFTER 14 WEEKS AND 4 DAYS(15 MG/KG, EVERY 6 WEEK)
     Route: 042
     Dates: start: 20250506
  14. INFLECTRA [Suspect]
     Active Substance: INFLIXIMAB-DYYB
     Dosage: 789 MG, AFTER 14 WEEKS AND 4 DAYS(15 MG/KG, EVERY 6 WEEK)
     Route: 042
     Dates: start: 20250506
  15. INFLECTRA [Suspect]
     Active Substance: INFLIXIMAB-DYYB
     Dosage: 789 MG, AFTER 14 WEEKS AND 4 DAYS(15 MG/KG, EVERY 6 WEEK)
     Route: 042
     Dates: start: 20250506
  16. INFLECTRA [Suspect]
     Active Substance: INFLIXIMAB-DYYB
     Dosage: 789 MG, AFTER 14 WEEKS AND 4 DAYS(15 MG/KG, EVERY 6 WEEK)
     Route: 042
     Dates: start: 20250506
  17. INFLECTRA [Suspect]
     Active Substance: INFLIXIMAB-DYYB
     Dosage: 789 MG, AFTER 14 WEEKS AND 4 DAYS(15 MG/KG, EVERY 6 WEEK)
     Route: 042
     Dates: start: 20250506
  18. INFLECTRA [Suspect]
     Active Substance: INFLIXIMAB-DYYB
     Dosage: 789 MG, AFTER 14 WEEKS AND 4 DAYS(15 MG/KG, EVERY 6 WEEK)
     Route: 042
     Dates: start: 20250506

REACTIONS (9)
  - Paronychia [Unknown]
  - Abortion [Unknown]
  - Asthma [Unknown]
  - Cellulitis [Not Recovered/Not Resolved]
  - Fatigue [Unknown]
  - Condition aggravated [Not Recovered/Not Resolved]
  - Inappropriate schedule of product administration [Unknown]
  - Off label use [Unknown]
  - Off label use [Unknown]

NARRATIVE: CASE EVENT DATE: 20240101
